FAERS Safety Report 23796216 (Version 4)
Quarter: 2025Q1

REPORT INFORMATION
  Report Type: Spontaneous
  Country: GB (occurrence: GB)
  Receive Date: 20240430
  Receipt Date: 20250328
  Transmission Date: 20250408
  Serious: Yes (Hospitalization, Other)
  Sender: AMGEN
  Company Number: None

PATIENT
  Age: 62 Year
  Sex: Female
  Weight: 106 kg

DRUGS (15)
  1. IVABRADINE [Suspect]
     Active Substance: IVABRADINE
     Indication: Product used for unknown indication
     Dosage: 1 DOSAGE FORM, BID (POS)
     Route: 048
  2. EZETIMIBE [Suspect]
     Active Substance: EZETIMIBE
     Indication: Product used for unknown indication
     Dosage: 1 DOSAGE FORM, QD (EACH MORNING 7X10MG IN MDS)
     Route: 048
  3. ACETAMINOPHEN [Suspect]
     Active Substance: ACETAMINOPHEN
     Indication: Product used for unknown indication
     Dosage: 2 DOSAGE FORM, QID (FOUR TIMES A DAY WHEN REQUIRED 32X500MG)
     Route: 048
  4. AMISULPRIDE [Suspect]
     Active Substance: AMISULPRIDE
     Indication: Product used for unknown indication
     Dosage: 1 DOSAGE FORM, QD (EACH MORNING 7X200MG IN MDS)
     Route: 048
  5. FUROSEMIDE [Suspect]
     Active Substance: FUROSEMIDE
     Indication: Product used for unknown indication
     Dosage: 1 DOSAGE FORM, QD (EACH MORNING 7X20MG IN MDS)
     Route: 048
  6. ASPIRIN [Suspect]
     Active Substance: ASPIRIN
     Indication: Product used for unknown indication
     Dosage: 1 DOSAGE FORM, QD (EACH MORNING 7X75MG IN MDS)
     Route: 048
  7. BUSPIRONE [Suspect]
     Active Substance: BUSPIRONE HYDROCHLORIDE
     Indication: Product used for unknown indication
     Dosage: 1 DOSAGE FORM, BID (POS)
     Route: 048
  8. LANSOPRAZOLE [Suspect]
     Active Substance: LANSOPRAZOLE
     Indication: Product used for unknown indication
     Dosage: 1 DOSAGE FORM, QD (EACH MORNING 7X30MG IN MDS)
     Route: 048
  9. LANTUS [Suspect]
     Active Substance: INSULIN GLARGINE
     Indication: Product used for unknown indication
     Route: 058
  10. POLYETHYLENE GLYCOL 3350\POTASSIUM CHLORIDE\SODIUM BICARBONATE\SODIUM [Suspect]
     Active Substance: POLYETHYLENE GLYCOL 3350\POTASSIUM CHLORIDE\SODIUM BICARBONATE\SODIUM CHLORIDE
     Indication: Constipation
     Dosage: 1 DOSAGE FORM, QD (1 DOSAGE FORM, QD (ONE SACHET ONCE A DAY WHEN REQUIRED FOR CONSTIPATION 20 SACHET
     Route: 048
  11. METHENAMINE [Suspect]
     Active Substance: METHENAMINE
     Indication: Product used for unknown indication
     Dosage: 1 DOSAGE FORM, QD (IN THE MORNING) 14X1GRAM IN MDS
     Route: 048
  12. CLOZARIL [Suspect]
     Active Substance: CLOZAPINE
     Indication: Schizophrenia
     Dosage: 1 DOSAGE FORM, QD (AT BEDTIME 7X100MG IN MDS)
     Route: 048
  13. CLOZARIL [Suspect]
     Active Substance: CLOZAPINE
     Dosage: 3 DOSAGE FORM, QD (EACH MORNING 21X25MG IN MDS)
     Route: 048
  14. CLOZARIL [Suspect]
     Active Substance: CLOZAPINE
     Dosage: 2 DOSAGE FORM, QD (AT BEDTIME 14X25MG IN MDS)
     Route: 048
  15. CLOZARIL [Suspect]
     Active Substance: CLOZAPINE
     Route: 048

REACTIONS (8)
  - Endocarditis enterococcal [Recovered/Resolved]
  - Aortic valve replacement [Unknown]
  - Mitral valve replacement [Unknown]
  - Cardiac failure [Unknown]
  - Hypotension [Unknown]
  - Emotional distress [Unknown]
  - Respiratory syncytial virus test positive [Unknown]
  - Fall [Unknown]

NARRATIVE: CASE EVENT DATE: 20240101
